FAERS Safety Report 17468877 (Version 1)
Quarter: 2020Q1

REPORT INFORMATION
  Report Type: Spontaneous
  Country: US (occurrence: US)
  Receive Date: 20200227
  Receipt Date: 20200227
  Transmission Date: 20200409
  Serious: No
  Sender: FDA-Public Use
  Company Number: US-AEGERION PHARMACEUTICAL, INC-AEGR004409

PATIENT
  Sex: Female
  Weight: 29.12 kg

DRUGS (1)
  1. MYALEPT [Suspect]
     Active Substance: METRELEPTIN
     Indication: LIPODYSTROPHY ACQUIRED
     Dosage: 1.5 MG, BID
     Route: 058
     Dates: start: 2015

REACTIONS (3)
  - Insomnia [Unknown]
  - Decreased appetite [Unknown]
  - Pyrexia [Unknown]
